FAERS Safety Report 6697660-1 (Version None)
Quarter: 2010Q2

REPORT INFORMATION
  Report Type: 
  Country: None (occurrence: None)
  Receive Date: 20100423
  Receipt Date: 20100415
  Transmission Date: 20101027
  Serious: Yes (Death)
  Sender: FDA-Public Use
  Company Number: CM10-0011

PATIENT

DRUGS (5)
  1. MORPHINE [Suspect]
     Indication: PROCEDURAL PAIN
     Dosage: PUMP PROGRAMED FOR 4/MG/4HR; PATIENT WAS REPORTED TO HAVE RECEIVED 2MG
     Dates: start: 20100325
  2. MORPHINE [Suspect]
  3. MORPHINE [Suspect]
  4. MORPHINE [Suspect]
  5. MORPHINE [Suspect]

REACTIONS (3)
  - CARDIO-RESPIRATORY ARREST [None]
  - ELECTROMECHANICAL DISSOCIATION [None]
  - MALAISE [None]
